FAERS Safety Report 8920004 (Version 1)
Quarter: 2012Q4

REPORT INFORMATION
  Report Type: 
  Country: JP (occurrence: JP)
  Receive Date: 20121121
  Receipt Date: 20121121
  Transmission Date: 20130627
  Serious: Yes (Other)
  Sender: FDA-Public Use
  Company Number: JP-MERCK-1211JPN007056

PATIENT
  Age: 66 Year
  Sex: Female

DRUGS (9)
  1. BONALON [Suspect]
     Indication: OSTEOPOROSIS
     Dosage: 35 mg, qw
     Route: 048
     Dates: start: 2007, end: 20100219
  2. BLOPRESS [Concomitant]
     Indication: HYPERTENSION
     Dosage: UNK
     Route: 048
  3. BAYASPIRIN [Concomitant]
     Indication: ARTERIOSCLEROSIS
     Dosage: UNK
     Route: 048
  4. DOXAZONE XL SR [Concomitant]
     Indication: HYPERTENSION
     Dosage: UNK
     Route: 048
  5. TETUCUR [Concomitant]
     Indication: ANAEMIA
     Dosage: UNK
     Route: 048
  6. OPALMON [Concomitant]
     Indication: INTERVERTEBRAL DISC PROTRUSION
     Dosage: UNK
     Route: 048
  7. METHYCOBAL [Concomitant]
     Indication: INTERVERTEBRAL DISC PROTRUSION
     Dosage: UNK
     Route: 048
  8. ALFAROL [Concomitant]
     Indication: OSTEOPOROSIS
     Dosage: UNK
     Route: 048
  9. VOLTAREN [Concomitant]
     Indication: INTERVERTEBRAL DISC PROTRUSION
     Dosage: UNK
     Route: 048

REACTIONS (1)
  - Osteomyelitis [Not Recovered/Not Resolved]
